FAERS Safety Report 21740809 (Version 1)
Quarter: 2022Q4

REPORT INFORMATION
  Report Type: Spontaneous
  Country: GB (occurrence: GB)
  Receive Date: 20221216
  Receipt Date: 20221216
  Transmission Date: 20230113
  Serious: Yes (Other)
  Sender: FDA-Public Use
  Company Number: None

PATIENT
  Age: 95 Year
  Sex: Female
  Weight: 37 kg

DRUGS (10)
  1. ALENDRONATE SODIUM [Suspect]
     Active Substance: ALENDRONATE SODIUM
     Dosage: 70 MILLIGRAM
     Dates: start: 20220622
  2. CALCI D [Concomitant]
     Dosage: 1 DOSAGE FORM, QD
     Dates: start: 20221007
  3. CARBOMER [Concomitant]
     Active Substance: CARBOMER
     Dosage: ONE DROP EACH EYE
     Dates: start: 20221110
  4. CHLORAMPHENICOL [Concomitant]
     Active Substance: CHLORAMPHENICOL
     Dosage: ONE DROP BOTH EYES FOR 5 DAYS AND THEN START VISCOTEARS
     Dates: start: 20221110, end: 20221115
  5. CITALOPRAM [Concomitant]
     Active Substance: CITALOPRAM HYDROBROMIDE
     Dosage: IN THE MORNING
     Dates: start: 20221007
  6. DIORALYTE [CITRIC ACID;GLUCOSE;POTASSIUM CHLORIDE;SODIUM BICARBONATE;S [Concomitant]
     Dosage: 1 DOSAGE FORM, AS NECESSARY
     Dates: start: 20221007, end: 20221017
  7. POLYETHYLENE GLYCOLS [Concomitant]
     Active Substance: POLYETHYLENE GLYCOLS
     Dosage: 1 DOSAGE FORM, AS REQUIRED (PRN)
     Dates: start: 20221011, end: 20221110
  8. OMEPRAZOLE [Concomitant]
     Active Substance: OMEPRAZOLE
     Dosage: IN THE MORNING
     Dates: start: 20221007
  9. OLOPATADINE [Concomitant]
     Active Substance: OLOPATADINE
     Dosage: 1 GTT DROPS, BID
     Dates: start: 20221007, end: 20221106
  10. SENNA LEAF [Concomitant]
     Active Substance: SENNA LEAF
     Dosage: IN THE EVENING
     Dates: start: 20221115

REACTIONS (1)
  - Gastrointestinal disorder [Recovered/Resolved]
